FAERS Safety Report 17771650 (Version 12)
Quarter: 2022Q1

REPORT INFORMATION
  Report Type: Report from Study
  Country: FR (occurrence: None)
  Receive Date: 20200512
  Receipt Date: 20220318
  Transmission Date: 20220424
  Serious: Yes (Hospitalization)
  Sender: FDA-Public Use
  Company Number: FR-ROCHE-2594723

PATIENT
  Age: 59 Year
  Sex: Female
  Weight: 51 kg

DRUGS (48)
  1. IPATASERTIB [Suspect]
     Active Substance: IPATASERTIB
     Indication: HER2 negative breast cancer
     Dosage: ON 05/MAR/2020, SHE RECEIVED MOST RECENT DOSE OF IPATASERTIB PRIOR TO AE/SAE ONSET
     Route: 048
     Dates: start: 20191129
  2. ATEZOLIZUMAB [Suspect]
     Active Substance: ATEZOLIZUMAB
     Indication: HER2 negative breast cancer
     Dosage: DOSE OF LAST DOSE (840 MG) ATEZOLIZUMAB ADMINISTERED PRIOR TO AE ONSET ON 28-APR-2015 5:15 PM
     Route: 041
     Dates: start: 20191129
  3. PACLITAXEL [Suspect]
     Active Substance: PACLITAXEL
     Indication: HER2 negative breast cancer
     Dosage: ON 28/APR/2020, SHE RECEIVED MOST RECENT DOSE OF PACLITAXEL (120 MG/M2) PRIOR TO AE ONSET AT 18:45
     Route: 042
     Dates: start: 20191129
  4. LOPERAMIDE [Suspect]
     Active Substance: LOPERAMIDE
     Indication: HER2 negative breast cancer
     Dosage: ON 18/MAR/2020, SHE RECEIVED MOST RECENT DOSE OF LOPERAMIDE (4 MG) PRIOR TO AE ONSET
     Route: 048
     Dates: start: 20191203
  5. BISOPROLOL FUMARATE\HYDROCHLOROTHIAZIDE [Concomitant]
     Active Substance: BISOPROLOL FUMARATE\HYDROCHLOROTHIAZIDE
     Indication: Hypertension
     Route: 048
  6. SIMVASTATIN [Concomitant]
     Active Substance: SIMVASTATIN
     Indication: Hypercholesterolaemia
     Route: 048
  7. LEVOTHYROXINE [Concomitant]
     Active Substance: LEVOTHYROXINE
     Indication: Hypothyroidism
     Route: 048
     Dates: start: 201301
  8. IBUPROFEN [Concomitant]
     Active Substance: IBUPROFEN
     Route: 048
     Dates: start: 20191105
  9. POLARAMINE [Concomitant]
     Active Substance: DEXCHLORPHENIRAMINE MALEATE
     Route: 062
     Dates: start: 20191129, end: 20200707
  10. RANITIDINE HYDROCHLORIDE [Concomitant]
     Active Substance: RANITIDINE HYDROCHLORIDE
     Route: 042
     Dates: start: 20191129, end: 20200707
  11. METHYLPREDNISOLONE [Concomitant]
     Active Substance: METHYLPREDNISOLONE
     Indication: Premedication
     Route: 042
     Dates: start: 20191129, end: 20200707
  12. EXFORGE [Concomitant]
     Active Substance: AMLODIPINE BESYLATE\VALSARTAN
     Indication: Hypertension
     Route: 048
     Dates: start: 20191216
  13. HYDROCLEAN [Concomitant]
     Route: 061
     Dates: start: 20200207, end: 20200927
  14. CARBOXYMETHYLCELLULOSE SODIUM [Concomitant]
     Active Substance: CARBOXYMETHYLCELLULOSE SODIUM
     Route: 061
     Dates: start: 20200207, end: 20200227
  15. CARBOXYMETHYLCELLULOSE SODIUM [Concomitant]
     Active Substance: CARBOXYMETHYLCELLULOSE SODIUM
     Route: 061
     Dates: start: 20200123, end: 20200927
  16. MEPILEX BORDER AG [Concomitant]
     Dosage: 1 U
     Route: 061
     Dates: start: 20200207, end: 20200227
  17. MEPILEX BORDER AG [Concomitant]
     Dosage: 1 U
     Route: 061
     Dates: start: 20200207, end: 20200927
  18. ERYTHROPOIETIN [Concomitant]
     Active Substance: ERYTHROPOIETIN
     Indication: Anaemia
     Route: 042
     Dates: start: 20200407, end: 20200507
  19. OXYCODONE HYDROCHLORIDE [Concomitant]
     Active Substance: OXYCODONE HYDROCHLORIDE
     Route: 048
     Dates: start: 20200427, end: 20200427
  20. OXYCODONE HYDROCHLORIDE [Concomitant]
     Active Substance: OXYCODONE HYDROCHLORIDE
     Route: 048
     Dates: start: 20200519, end: 20200519
  21. MIDAZOLAM [Concomitant]
     Active Substance: MIDAZOLAM
  22. NITROUS OXIDE\OXYGEN [Concomitant]
     Active Substance: NITROUS OXIDE\OXYGEN
  23. LAMALINE [Concomitant]
     Route: 048
     Dates: start: 20200221, end: 20200221
  24. LAMALINE [Concomitant]
     Dates: start: 20200420, end: 20200421
  25. POTASSIUM CHLORIDE [Concomitant]
     Active Substance: POTASSIUM CHLORIDE
     Indication: Hypokalaemia
     Route: 042
     Dates: start: 20200420, end: 20200420
  26. POTASSIUM CHLORIDE [Concomitant]
     Active Substance: POTASSIUM CHLORIDE
     Route: 042
     Dates: start: 20200421, end: 20200421
  27. MORPHINE SULFATE [Concomitant]
     Active Substance: MORPHINE SULFATE
     Route: 048
     Dates: start: 20200420, end: 20200421
  28. SKENAN [Concomitant]
     Active Substance: MORPHINE SULFATE
     Route: 048
     Dates: start: 20200420, end: 20200421
  29. POTASSIUM CHLORIDE [Concomitant]
     Active Substance: POTASSIUM CHLORIDE
     Indication: Hyperkalaemia
     Route: 048
     Dates: start: 20200420, end: 20200420
  30. POTASSIUM CHLORIDE [Concomitant]
     Active Substance: POTASSIUM CHLORIDE
     Indication: Hypokalaemia
  31. DEXTROSE\POTASSIUM CHLORIDE\SODIUM CHLORIDE [Concomitant]
     Active Substance: DEXTROSE\POTASSIUM CHLORIDE\SODIUM CHLORIDE
     Route: 042
     Dates: start: 20200420, end: 20200420
  32. DOLIPRANE [Concomitant]
     Active Substance: ACETAMINOPHEN
     Route: 048
     Dates: start: 20200420, end: 20200421
  33. INNOHEP [Concomitant]
     Active Substance: TINZAPARIN SODIUM
     Indication: Phlebitis
     Route: 030
     Dates: start: 20200420, end: 20200421
  34. INNOHEP [Concomitant]
     Active Substance: TINZAPARIN SODIUM
     Route: 058
     Dates: start: 20200207, end: 20200624
  35. NEFOPAM [Concomitant]
     Active Substance: NEFOPAM
     Route: 048
     Dates: start: 20200421, end: 20200421
  36. KETAMINE [Concomitant]
     Active Substance: KETAMINE
     Indication: Pain
     Route: 048
     Dates: start: 20200427, end: 20200427
  37. GABAPENTIN [Concomitant]
     Active Substance: GABAPENTIN
     Route: 048
     Dates: start: 20200427, end: 20200625
  38. ABSTRAL [Concomitant]
     Active Substance: FENTANYL CITRATE
     Route: 048
     Dates: start: 20200426, end: 20200426
  39. ABSTRAL [Concomitant]
     Active Substance: FENTANYL CITRATE
     Route: 060
  40. PHOCYTAN [Concomitant]
     Active Substance: .ALPHA.-GLUCOSE-1-PHOSPHATE
     Indication: Hypophosphataemia
     Route: 042
     Dates: start: 20200421, end: 20200421
  41. PRIMPERAN [Concomitant]
     Active Substance: METOCLOPRAMIDE HYDROCHLORIDE
     Route: 048
     Dates: start: 20200421
  42. MIDAZOLAM [Concomitant]
     Active Substance: MIDAZOLAM
     Route: 048
     Dates: start: 20200427, end: 20200427
  43. POLYETHYLENE GLYCOLS [Concomitant]
     Active Substance: POLYETHYLENE GLYCOLS
     Route: 048
     Dates: start: 20200504
  44. MAGNESIUM CHLORIDE [Concomitant]
     Active Substance: MAGNESIUM CHLORIDE
     Dosage: AMPULE OTHER
     Route: 042
     Dates: start: 20200423, end: 20200423
  45. AMLODIPINE BESYLATE [Concomitant]
     Active Substance: AMLODIPINE BESYLATE
     Indication: Hypertension
     Route: 048
     Dates: start: 20200420
  46. BISOPROLOL [Concomitant]
     Active Substance: BISOPROLOL
     Indication: Abdominal pain upper
     Route: 048
     Dates: start: 20200420
  47. BISOPROLOL [Concomitant]
     Active Substance: BISOPROLOL
     Indication: Nausea
  48. BISOPROLOL [Concomitant]
     Active Substance: BISOPROLOL
     Indication: Vomiting

REACTIONS (1)
  - COVID-19 [Recovered/Resolved]

NARRATIVE: CASE EVENT DATE: 20200430
